FAERS Safety Report 4323864-9 (Version None)
Quarter: 2004Q1

REPORT INFORMATION
  Report Type: 
  Country: None (occurrence: None)
  Receive Date: 20040319
  Receipt Date: 20040302
  Transmission Date: 20041129
  Serious: Yes (Death, Other)
  Sender: FDA-Public Use
  Company Number: WAES 0403USA00575

PATIENT

DRUGS (1)
  1. INDOCIN I.V. (INDOMETHACIN SODIUM) [Suspect]
     Indication: PATENT DUCTUS ARTERIOSUS
     Dosage: IV
     Route: 042

REACTIONS (5)
  - CEREBRAL HAEMORRHAGE NEONATAL [None]
  - DRUG INEFFECTIVE [None]
  - INTESTINAL PERFORATION [None]
  - NECROTISING COLITIS [None]
  - NEONATAL DISORDER [None]
